FAERS Safety Report 10227525 (Version 1)
Quarter: 2014Q2

REPORT INFORMATION
  Report Type: Spontaneous
  Country: US (occurrence: US)
  Receive Date: 20140610
  Receipt Date: 20140610
  Transmission Date: 20141212
  Serious: No
  Sender: FDA-Public Use
  Company Number: US-VIIV HEALTHCARE LIMITED-A1070991A

PATIENT
  Age: 57 Year
  Sex: Female

DRUGS (10)
  1. TIVICAY [Suspect]
     Indication: HIV INFECTION
     Dosage: 50MG PER DAY
     Route: 048
     Dates: start: 20140112, end: 20140408
  2. TRUVADA [Concomitant]
  3. GLUCOPHAGE [Concomitant]
  4. LANTUS [Concomitant]
  5. ACTOS [Concomitant]
  6. MEPRON [Concomitant]
  7. NORVASC [Concomitant]
  8. LIPITOR [Concomitant]
  9. BENICAR [Concomitant]
  10. CONCERTA [Concomitant]

REACTIONS (1)
  - Rash [Unknown]
